FAERS Safety Report 12631041 (Version 2)
Quarter: 2016Q3

REPORT INFORMATION
  Report Type: Spontaneous
  Country: US (occurrence: US)
  Receive Date: 20160808
  Receipt Date: 20160808
  Transmission Date: 20161109
  Serious: No
  Sender: FDA-Public Use
  Company Number: US-BEH-2015051995

PATIENT
  Sex: Female
  Weight: 44 kg

DRUGS (18)
  1. MECLIZINE [Concomitant]
     Active Substance: MECLIZINE HYDROCHLORIDE
  2. PROCHLORPERAZINE. [Concomitant]
     Active Substance: PROCHLORPERAZINE
  3. TOPAMAX [Concomitant]
     Active Substance: TOPIRAMATE
  4. ATENOLOL. [Concomitant]
     Active Substance: ATENOLOL
  5. KLOR-CON [Concomitant]
     Active Substance: POTASSIUM CHLORIDE
  6. AMITRIPTYLINE [Concomitant]
     Active Substance: AMITRIPTYLINE
  7. HYDROCHLORTHIAZIDE [Concomitant]
     Active Substance: HYDROCHLOROTHIAZIDE
  8. DILTIAZEM. [Concomitant]
     Active Substance: DILTIAZEM
  9. LIDOCAINE/PRILOCAINE [Concomitant]
     Active Substance: LIDOCAINE\PRILOCAINE
  10. HIZENTRA [Suspect]
     Active Substance: HUMAN IMMUNOGLOBULIN G
     Indication: IMMUNODEFICIENCY COMMON VARIABLE
     Dosage: 2 GM 10 ML VIAL
     Route: 058
  11. PREDNISONE. [Concomitant]
     Active Substance: PREDNISONE
  12. FUROSEMIDE. [Concomitant]
     Active Substance: FUROSEMIDE
  13. HIZENTRA [Suspect]
     Active Substance: HUMAN IMMUNOGLOBULIN G
     Dosage: 4 GM 20 ML VIAL
     Route: 058
  14. OMEPRAZOLE. [Concomitant]
     Active Substance: OMEPRAZOLE
  15. PROMETHAZINE [Concomitant]
     Active Substance: PROMETHAZINE\PROMETHAZINE HYDROCHLORIDE
  16. DIAZEPAM. [Concomitant]
     Active Substance: DIAZEPAM
  17. EPIPEN [Concomitant]
     Active Substance: EPINEPHRINE
  18. LEVETIRACETAM. [Concomitant]
     Active Substance: LEVETIRACETAM

REACTIONS (3)
  - Dizziness [Unknown]
  - Injection site mass [Unknown]
  - Blood electrolytes decreased [Unknown]
